FAERS Safety Report 4655583-3 (Version None)
Quarter: 2005Q2

REPORT INFORMATION
  Report Type: 
  Country: None (occurrence: None)
  Receive Date: 20050505
  Receipt Date: 20050426
  Transmission Date: 20051028
  Serious: Yes (Hospitalization, Other)
  Sender: FDA-Public Use
  Company Number: 2005042698

PATIENT
  Sex: Female
  Weight: 72.5755 kg

DRUGS (13)
  1. NEURONTIN [Suspect]
     Indication: HEADACHE
     Dosage: 100 MG (100 MG, 1 IN 1 D), ORAL
     Route: 048
  2. ALL OTHER THERAPEUTIC PRODUCTS (ALL OTHER THERAPEUTIC PRODUCTS) [Suspect]
     Indication: ILL-DEFINED DISORDER
  3. ASPIRIN [Suspect]
     Indication: ILL-DEFINED DISORDER
     Dosage: ORAL
     Route: 048
  4. LANSOPRAZOLE [Concomitant]
  5. DILTIAZEM HYDROCHLORIDE [Concomitant]
  6. ALPRAZOLAM [Concomitant]
  7. AMITRIPTYLINE HYDROCHLORIDE [Concomitant]
  8. TOLTERODINE TARTRATE [Concomitant]
  9. FUROSEMIDE [Concomitant]
  10. ATORVASTATIN CALCIUM [Concomitant]
  11. THIAMINE HCL [Concomitant]
  12. ACETAMINOPHEN [Concomitant]
  13. CALCIUM (CALCIUM) [Concomitant]

REACTIONS (7)
  - ANAEMIA [None]
  - ASTHENIA [None]
  - BODY HEIGHT DECREASED [None]
  - CORONARY ARTERY OCCLUSION [None]
  - GASTROINTESTINAL ANGIODYSPLASIA HAEMORRHAGIC [None]
  - NAUSEA [None]
  - PHARMACEUTICAL PRODUCT COMPLAINT [None]
